FAERS Safety Report 11471362 (Version 2)
Quarter: 2015Q3

REPORT INFORMATION
  Report Type: Spontaneous
  Country: US (occurrence: US)
  Receive Date: 20150903
  Receipt Date: 20150903
  Transmission Date: 20151125
  Serious: Yes (Other)
  Sender: FDA-Public Use
  Company Number: US-ELI_LILLY_AND_COMPANY-US201201003726

PATIENT
  Age: 47 Year
  Sex: Male
  Weight: 115.19 kg

DRUGS (2)
  1. CYMBALTA [Suspect]
     Active Substance: DULOXETINE HYDROCHLORIDE
     Indication: PAIN
     Dosage: 60 MG, UNK
  2. CYMBALTA [Suspect]
     Active Substance: DULOXETINE HYDROCHLORIDE
     Dosage: 30 MG, QD
     Route: 048
     Dates: start: 20111219, end: 20111222

REACTIONS (4)
  - Intentional product misuse [Recovered/Resolved]
  - Abnormal dreams [Unknown]
  - Anxiety [Unknown]
  - Suicidal ideation [Recovered/Resolved]
